FAERS Safety Report 24594897 (Version 1)
Quarter: 2024Q4

REPORT INFORMATION
  Report Type: Spontaneous
  Country: AU (occurrence: AU)
  Receive Date: 20241108
  Receipt Date: 20241108
  Transmission Date: 20250115
  Serious: Yes (Other)
  Sender: GE HEALTHCARE
  Company Number: AU-GE HEALTHCARE-2024CSU012757

PATIENT
  Age: 65 Year
  Sex: Female
  Weight: 61 kg

DRUGS (1)
  1. OMNIPAQUE [Suspect]
     Active Substance: IOHEXOL
     Indication: Computerised tomogram abdomen
     Dosage: 70 ML, TOTAL
     Route: 042
     Dates: start: 20241101, end: 20241101

REACTIONS (5)
  - Seasonal allergy [Recovering/Resolving]
  - Sneezing [Recovering/Resolving]
  - Eye swelling [Recovering/Resolving]
  - Rash [Recovering/Resolving]
  - Eye pruritus [Recovering/Resolving]

NARRATIVE: CASE EVENT DATE: 20241101
